FAERS Safety Report 4708699-7 (Version None)
Quarter: 2005Q2

REPORT INFORMATION
  Report Type: 
  Country: None (occurrence: None)
  Receive Date: 20050629
  Receipt Date: 20050503
  Transmission Date: 20051028
  Serious: No
  Sender: FDA-Public Use
  Company Number: 05P-163-0299499-00

PATIENT
  Age: 64 Year
  Sex: Female
  Weight: 54.4316 kg

DRUGS (5)
  1. HUMIRA [Suspect]
     Indication: RHEUMATOID ARTHRITIS
     Dosage: 40 MG, 1 IN 2 WK, SUBCUTANEOUS
     Route: 058
     Dates: start: 20050405
  2. FILGRASTIM [Concomitant]
  3. MORPHINE SULFATE [Concomitant]
  4. ZOLPIDEM TARTRATE [Concomitant]
  5. RANITIDINE HYDROCHLORIDE [Concomitant]

REACTIONS (3)
  - PRURITUS [None]
  - RASH GENERALISED [None]
  - RASH PAPULAR [None]
